FAERS Safety Report 13434175 (Version 1)
Quarter: 2017Q2

REPORT INFORMATION
  Report Type: Spontaneous
  Country: US (occurrence: US)
  Receive Date: 20170413
  Receipt Date: 20170413
  Transmission Date: 20170830
  Serious: No
  Sender: FDA-Public Use
  Company Number: US-FERRINGPH-2016FE01640

PATIENT
  Age: 61 Year
  Sex: Male
  Weight: 95.24 kg

DRUGS (6)
  1. FIRMAGON [Suspect]
     Active Substance: DEGARELIX ACETATE
     Indication: PROSTATE CANCER
     Dosage: 240 MG, EVERY 28 DAYS
     Route: 058
     Dates: start: 20160325
  2. VALSARTAN. [Concomitant]
     Active Substance: VALSARTAN
  3. VIAGRA [Concomitant]
     Active Substance: SILDENAFIL CITRATE
  4. LEXAPRO [Concomitant]
     Active Substance: ESCITALOPRAM OXALATE
  5. DIOVAN [Concomitant]
     Active Substance: VALSARTAN
  6. ZOCOR [Concomitant]
     Active Substance: SIMVASTATIN

REACTIONS (2)
  - Pain [Not Recovered/Not Resolved]
  - Arthralgia [Not Recovered/Not Resolved]

NARRATIVE: CASE EVENT DATE: 20160329
